FAERS Safety Report 12289479 (Version 1)
Quarter: 2016Q2

REPORT INFORMATION
  Report Type: Spontaneous
  Country: GB (occurrence: GB)
  Receive Date: 20160421
  Receipt Date: 20160421
  Transmission Date: 20160815
  Serious: Yes (Other)
  Sender: FDA-Public Use
  Company Number: GB-SUN PHARMACEUTICAL INDUSTRIES LTD-2016RR-115286

PATIENT
  Age: 8 Month
  Sex: Female
  Weight: 8.9 kg

DRUGS (1)
  1. CLARITHROMYCIN. [Suspect]
     Active Substance: CLARITHROMYCIN
     Indication: UPPER RESPIRATORY TRACT INFECTION
     Dosage: 125MG/5ML.
     Route: 048
     Dates: start: 20160329, end: 20160330

REACTIONS (4)
  - Vomiting [Recovering/Resolving]
  - Cyanosis [Unknown]
  - Retching [Unknown]
  - Choking [Recovering/Resolving]

NARRATIVE: CASE EVENT DATE: 20160329
